FAERS Safety Report 9704572 (Version 3)
Quarter: 2013Q4

REPORT INFORMATION
  Report Type: Spontaneous
  Country: US (occurrence: US)
  Receive Date: 20131122
  Receipt Date: 20131219
  Transmission Date: 20140711
  Serious: Yes (Death)
  Sender: FDA-Public Use
  Company Number: US-BAXTER-2013BAX046171

PATIENT
  Age: 43 Year
  Sex: Female
  Weight: 102.15 kg

DRUGS (9)
  1. STERILE WATER FOR INJECTION [Suspect]
     Indication: MEDICATION DILUTION
     Route: 030
     Dates: start: 201306
  2. ABILIFY MAINTENA KIT [Suspect]
     Indication: SCHIZOPHRENIA
     Route: 030
     Dates: start: 201306
  3. ABILIFY [Suspect]
     Indication: SCHIZOPHRENIA
     Route: 048
     Dates: start: 20131022
  4. RISPERDAL CONSTA [Suspect]
     Indication: PRODUCT USED FOR UNKNOWN INDICATION
  5. RISPERDAL [Suspect]
     Indication: PRODUCT USED FOR UNKNOWN INDICATION
     Route: 048
  6. TOPAMAX [Concomitant]
     Indication: CONVULSION
  7. TOPAMAX [Concomitant]
     Indication: WEIGHT CONTROL
  8. CHLORPROMAZINE [Concomitant]
     Indication: PRODUCT USED FOR UNKNOWN INDICATION
  9. DEPAKOTE [Concomitant]
     Indication: PRODUCT USED FOR UNKNOWN INDICATION

REACTIONS (6)
  - Drug ineffective [Unknown]
  - Psychotic disorder [Unknown]
  - Death [Fatal]
  - Gait disturbance [Recovered/Resolved]
  - Depressed level of consciousness [Unknown]
  - Agitation [Unknown]
